FAERS Safety Report 11590629 (Version 3)
Quarter: 2015Q4

REPORT INFORMATION
  Report Type: Spontaneous
  Country: US (occurrence: US)
  Receive Date: 20151002
  Receipt Date: 20151016
  Transmission Date: 20160304
  Serious: Yes (Hospitalization, Other)
  Sender: FDA-Public Use
  Company Number: US-ABBVIE-15P-163-1468029-00

PATIENT
  Age: 22 Year
  Sex: Male
  Weight: 68.1 kg

DRUGS (5)
  1. DEPAKOTE ER [Suspect]
     Active Substance: DIVALPROEX SODIUM
     Route: 065
     Dates: start: 201406
  2. DEPAKOTE ER [Suspect]
     Active Substance: DIVALPROEX SODIUM
     Route: 065
     Dates: start: 2007, end: 2014
  3. DEPAKOTE ER [Suspect]
     Active Substance: DIVALPROEX SODIUM
     Indication: GENERALISED TONIC-CLONIC SEIZURE
     Route: 065
     Dates: start: 2000, end: 2006
  4. LEVETIRACETAM. [Suspect]
     Active Substance: LEVETIRACETAM
     Indication: PRODUCT USED FOR UNKNOWN INDICATION
     Route: 065
     Dates: start: 2014, end: 2014
  5. KEPPRA [Suspect]
     Active Substance: LEVETIRACETAM
     Indication: PRODUCT USED FOR UNKNOWN INDICATION
     Route: 065

REACTIONS (12)
  - Soliloquy [Recovered/Resolved]
  - Generalised tonic-clonic seizure [Recovered/Resolved]
  - Seizure [Recovered/Resolved]
  - Pruritus [Recovered/Resolved]
  - Impaired work ability [Recovering/Resolving]
  - Adverse drug reaction [Recovered/Resolved]
  - Hallucination [Recovered/Resolved]
  - Abnormal behaviour [Recovering/Resolving]
  - Confusional state [Recovered/Resolved]
  - Cardiac arrest [Recovered/Resolved]
  - Memory impairment [Recovered/Resolved]
  - Clavicle fracture [Unknown]

NARRATIVE: CASE EVENT DATE: 201405
